FAERS Safety Report 5389371-X (Version None)
Quarter: 2007Q3

REPORT INFORMATION
  Report Type: 
  Country: None (occurrence: None)
  Receive Date: 20070713
  Receipt Date: 20070713
  Transmission Date: 20080115
  Serious: Yes (Hospitalization)
  Sender: FDA-Public Use
  Company Number: None

PATIENT
  Sex: Male
  Weight: 70.5 kg

DRUGS (8)
  1. CYCLOPHOSPHAMIDE [Suspect]
     Dosage: 1440 MG
  2. LIPOSOMAL DOXORUBICIN (DOXIL) [Suspect]
     Dosage: 77 MG
  3. NEULASTA [Suspect]
     Dosage: 6 MG
  4. RITUXIMAB (MOAB C2B8 ANTI CD20, CHIMERIC) [Suspect]
     Dosage: 720 MG
  5. VINCRISTINE SULFATE [Suspect]
     Dosage: 2 MG
  6. COREG [Concomitant]
  7. DIOVAN/HYDROCHLOROTHIAZIDE [Concomitant]
  8. DYNACIRC [Concomitant]

REACTIONS (3)
  - CARDIAC FAILURE CONGESTIVE [None]
  - ORTHOSTATIC HYPOTENSION [None]
  - OXYGEN SATURATION DECREASED [None]
